FAERS Safety Report 10184020 (Version 1)
Quarter: 2014Q2

REPORT INFORMATION
  Report Type: Spontaneous
  Country: US (occurrence: US)
  Receive Date: 20140520
  Receipt Date: 20140520
  Transmission Date: 20141212
  Serious: No
  Sender: FDA-Public Use
  Company Number: US-MYLANLABS-2014S1005445

PATIENT
  Age: 78 Year
  Sex: Female
  Weight: 56.7 kg

DRUGS (6)
  1. TOLTERODINE TARTRATE [Suspect]
     Indication: URINARY INCONTINENCE
     Route: 048
     Dates: start: 201401
  2. COUMADIN [Concomitant]
     Indication: COAGULOPATHY
  3. CELEBREX [Concomitant]
     Indication: ARTHRITIS
  4. NIFEDIPINE [Concomitant]
     Indication: BLOOD PRESSURE INCREASED
  5. LISINOPRIL [Concomitant]
     Indication: BLOOD PRESSURE INCREASED
  6. BUSPAR [Concomitant]
     Indication: ANXIETY

REACTIONS (2)
  - Drug effect decreased [Not Recovered/Not Resolved]
  - Pollakiuria [Not Recovered/Not Resolved]
